FAERS Safety Report 11174810 (Version 2)
Quarter: 2015Q3

REPORT INFORMATION
  Report Type: Report from Study
  Country: US (occurrence: US)
  Receive Date: 20150609
  Receipt Date: 20150902
  Transmission Date: 20151125
  Serious: Yes (Other)
  Sender: FDA-Public Use
  Company Number: US-BAYER-2015-308961

PATIENT
  Age: 71 Year
  Sex: Male

DRUGS (1)
  1. NEXAVAR [Suspect]
     Active Substance: SORAFENIB
     Indication: THYROID CANCER
     Dosage: 200 MG, BID
     Route: 048

REACTIONS (2)
  - Thyroid cancer [Not Recovered/Not Resolved]
  - Drug ineffective [None]
